FAERS Safety Report 6503568-4 (Version None)
Quarter: 2009Q4

REPORT INFORMATION
  Report Type: 
  Country: None (occurrence: None)
  Receive Date: 20091217
  Receipt Date: 20091214
  Transmission Date: 20100525
  Serious: Yes (Other)
  Sender: FDA-Public Use
  Company Number: US-PFIZER INC-2009296142

PATIENT
  Sex: Female

DRUGS (2)
  1. LIPITOR [Suspect]
  2. GRAPEFRUIT JUICE [Suspect]
     Route: 048

REACTIONS (4)
  - FOOD INTERACTION [None]
  - HEART RATE INCREASED [None]
  - PAIN [None]
  - PALPITATIONS [None]
